FAERS Safety Report 25484937 (Version 1)
Quarter: 2025Q2

REPORT INFORMATION
  Report Type: Spontaneous
  Country: CO (occurrence: CO)
  Receive Date: 20250626
  Receipt Date: 20250626
  Transmission Date: 20250717
  Serious: Yes (Other)
  Sender: NOVARTIS
  Company Number: CO-002147023-NVSC2025CO079765

PATIENT
  Age: 35 Year
  Sex: Female
  Weight: 78.9 kg

DRUGS (6)
  1. OFATUMUMAB [Suspect]
     Active Substance: OFATUMUMAB
     Indication: Relapsing-remitting multiple sclerosis
     Dosage: 20 MG, QMO
     Route: 058
     Dates: start: 20241010, end: 20250306
  2. PREGABALIN [Suspect]
     Active Substance: PREGABALIN
     Indication: Anxiety
     Route: 065
  3. PREGABALIN [Suspect]
     Active Substance: PREGABALIN
     Indication: Insomnia
     Route: 065
  4. Iofi [Concomitant]
     Indication: Mineral supplementation
     Route: 065
  5. QUETIAPINE [Concomitant]
     Active Substance: QUETIAPINE
     Indication: Anxiety
     Route: 065
  6. QUETIAPINE [Concomitant]
     Active Substance: QUETIAPINE
     Indication: Insomnia

REACTIONS (5)
  - High risk pregnancy [Unknown]
  - Maternal exposure during pregnancy [Not Recovered/Not Resolved]
  - Urinary tract infection [Unknown]
  - Haemoglobin decreased [Unknown]
  - Pain [Unknown]

NARRATIVE: CASE EVENT DATE: 20250401
